FAERS Safety Report 15144948 (Version 1)
Quarter: 2018Q3

REPORT INFORMATION
  Report Type: Spontaneous
  Country: HU (occurrence: HU)
  Receive Date: 20180713
  Receipt Date: 20180713
  Transmission Date: 20181010
  Serious: Yes (Other)
  Sender: FDA-Public Use
  Company Number: HU-JNJFOC-20180702170

PATIENT
  Age: 53 Year
  Sex: Male

DRUGS (1)
  1. DARATUMUMAB [Suspect]
     Active Substance: DARATUMUMAB
     Indication: PLASMA CELL MYELOMA
     Route: 042
     Dates: start: 20150211, end: 20150421

REACTIONS (3)
  - Crossmatch incompatible [Recovered/Resolved]
  - Coombs indirect test positive [Recovered/Resolved]
  - Laboratory test interference [Recovered/Resolved]
